FAERS Safety Report 8481317-0 (Version None)
Quarter: 2012Q2

REPORT INFORMATION
  Report Type: 
  Country: None (occurrence: None)
  Receive Date: 20120626
  Receipt Date: 20120626
  Transmission Date: 20120825
  Serious: Yes (Life-Threatening)
  Sender: FDA-Public Use
  Company Number: None

PATIENT
  Age: 45 Year
  Sex: Female
  Weight: 95 kg

DRUGS (1)
  1. AMOXICILLIN AND CLAVULANATE POTASSIUM [Suspect]
     Indication: UPPER RESPIRATORY TRACT INFECTION
     Dosage: 875 MG BID PO
     Route: 048
     Dates: start: 20120103, end: 20120104

REACTIONS (4)
  - PRURITUS [None]
  - ANGIOEDEMA [None]
  - OCULAR HYPERAEMIA [None]
  - URTICARIA [None]
